FAERS Safety Report 7231078-8 (Version None)
Quarter: 2011Q1

REPORT INFORMATION
  Report Type: 
  Country: None (occurrence: None)
  Receive Date: 20110107
  Receipt Date: 20101223
  Transmission Date: 20110831
  Serious: Yes (Hospitalization)
  Sender: FDA-Public Use
  Company Number: AUR-APL-2010-03225

PATIENT
  Age: 71 Year
  Sex: Female

DRUGS (11)
  1. ASPIRIN [Concomitant]
  2. OMEPRAZOLE [Concomitant]
  3. METFORMIN [Concomitant]
  4. MULTI-VITAMIN [Concomitant]
  5. ISOSORBIDE MONONITRATE [Concomitant]
  6. ASCORBIC ACID [Concomitant]
  7. FLOXACILLIN SODIUM [Suspect]
     Indication: CELLULITIS
     Dosage: ORAL
     Route: 048
     Dates: start: 20101106, end: 20101129
  8. CEPHALEXIN [Concomitant]
  9. LOVAZA [Concomitant]
  10. PENICILLIN V [Suspect]
     Indication: CELLULITIS
     Dosage: ORAL
     Route: 048
     Dates: start: 20101106, end: 20101129
  11. LOSARTAN POTASSIUM [Concomitant]

REACTIONS (1)
  - JAUNDICE [None]
